FAERS Safety Report 26195100 (Version 2)
Quarter: 2025Q4

REPORT INFORMATION
  Report Type: Spontaneous
  Country: US (occurrence: US)
  Receive Date: 20251224
  Receipt Date: 20251226
  Transmission Date: 20260117
  Serious: No
  Sender: JOHNSON AND JOHNSON
  Company Number: US-JNJFOC-20251224703

PATIENT
  Age: 57 Year
  Sex: Male

DRUGS (4)
  1. TREMFYA [Suspect]
     Active Substance: GUSELKUMAB
     Indication: Psoriatic arthropathy
  2. TREMFYA [Suspect]
     Active Substance: GUSELKUMAB
  3. TREMFYA [Suspect]
     Active Substance: GUSELKUMAB
  4. TREMFYA [Suspect]
     Active Substance: GUSELKUMAB

REACTIONS (11)
  - Pain [Unknown]
  - Mobility decreased [Unknown]
  - Impaired work ability [Unknown]
  - Fear of death [Unknown]
  - Gait disturbance [Unknown]
  - Unevaluable event [Unknown]
  - Quality of life decreased [Unknown]
  - Insomnia [Unknown]
  - Abdominal discomfort [Unknown]
  - Arthralgia [Unknown]
  - Therapeutic response decreased [Unknown]
